FAERS Safety Report 20883388 (Version 1)
Quarter: 2022Q2

REPORT INFORMATION
  Report Type: Spontaneous
  Country: AU (occurrence: AU)
  Receive Date: 20220527
  Receipt Date: 20220527
  Transmission Date: 20220721
  Serious: Yes (Death, Hospitalization)
  Sender: FDA-Public Use
  Company Number: AU-MYLANLABS-2022M1038845

PATIENT
  Age: 5 Decade

DRUGS (4)
  1. AMITRIPTYLINE [Suspect]
     Active Substance: AMITRIPTYLINE
     Indication: Antidepressant therapy
     Dosage: UNK
     Route: 048
  2. VENLAFAXINE [Suspect]
     Active Substance: VENLAFAXINE HYDROCHLORIDE
     Indication: Antidepressant therapy
     Dosage: UNK
     Route: 048
  3. SODIUM BICARBONATE [Suspect]
     Active Substance: SODIUM BICARBONATE
     Indication: Electrocardiogram QRS complex prolonged
     Dosage: 100 MILLIMOLE (BOLUSES)
  4. SODIUM BICARBONATE [Suspect]
     Active Substance: SODIUM BICARBONATE
     Dosage: 100 MILLIMOLE (REPEATED EVERY 3-5 MINUTES FOR OVER 90 MINUTES) (BOLUSES)

REACTIONS (7)
  - Brain oedema [Fatal]
  - Brain death [Fatal]
  - Toxicity to various agents [Fatal]
  - Depressed level of consciousness [Unknown]
  - Seizure [Unknown]
  - Electrocardiogram QRS complex prolonged [Unknown]
  - Sinus tachycardia [Unknown]
